FAERS Safety Report 24417232 (Version 2)
Quarter: 2024Q4

REPORT INFORMATION
  Report Type: Spontaneous
  Country: DE (occurrence: DE)
  Receive Date: 20241009
  Receipt Date: 20241122
  Transmission Date: 20250115
  Serious: Yes (Other)
  Sender: ELI LILLY AND COMPANY
  Company Number: DE-ELI_LILLY_AND_COMPANY-DE202409018230

PATIENT
  Age: 93 Year
  Sex: Female
  Weight: 59 kg

DRUGS (1)
  1. TERIPARATIDE [Suspect]
     Active Substance: TERIPARATIDE
     Indication: Product used for unknown indication
     Dosage: UNK, DAILY
     Route: 065
     Dates: start: 2023

REACTIONS (15)
  - Bone disorder [Unknown]
  - Musculoskeletal discomfort [Unknown]
  - Fractured sacrum [Recovering/Resolving]
  - Spinal disorder [Recovering/Resolving]
  - Osteoporosis [Not Recovered/Not Resolved]
  - Lumbar vertebral fracture [Recovering/Resolving]
  - Spinal osteoarthritis [Recovering/Resolving]
  - Back pain [Recovering/Resolving]
  - Muscle disorder [Recovering/Resolving]
  - Ligament disorder [Recovering/Resolving]
  - Pain [Recovering/Resolving]
  - Rotator cuff syndrome [Recovering/Resolving]
  - Osteoarthritis [Recovering/Resolving]
  - Spinal stenosis [Recovering/Resolving]
  - Thoracic vertebral fracture [Recovering/Resolving]

NARRATIVE: CASE EVENT DATE: 20240125
